FAERS Safety Report 16033412 (Version 1)
Quarter: 2019Q1

REPORT INFORMATION
  Report Type: Spontaneous
  Country: CA (occurrence: CA)
  Receive Date: 20190305
  Receipt Date: 20190305
  Transmission Date: 20190418
  Serious: Yes (Hospitalization, Other)
  Sender: FDA-Public Use
  Company Number: CA-TEVA-2019-CA-1019313

PATIENT
  Age: 42 Year
  Sex: Female

DRUGS (2)
  1. HUMIRA [Suspect]
     Active Substance: ADALIMUMAB
     Indication: PRODUCT USED FOR UNKNOWN INDICATION
     Route: 058
  2. METHOTREXATE. [Suspect]
     Active Substance: METHOTREXATE
     Indication: PRODUCT USED FOR UNKNOWN INDICATION
     Route: 065

REACTIONS (15)
  - Fatigue [Unknown]
  - Loss of personal independence in daily activities [Unknown]
  - Urticaria [Unknown]
  - Adverse drug reaction [Unknown]
  - Genital infection [Unknown]
  - Headache [Unknown]
  - Inflammation [Unknown]
  - Mononeuritis [Unknown]
  - Condition aggravated [Unknown]
  - Oral infection [Unknown]
  - Rash [Unknown]
  - Uveitis [Unknown]
  - Drug ineffective [Unknown]
  - Induration [Unknown]
  - Mouth ulceration [Unknown]
